FAERS Safety Report 16891202 (Version 1)
Quarter: 2019Q4

REPORT INFORMATION
  Report Type: Spontaneous
  Country: US (occurrence: US)
  Receive Date: 20190812
  Receipt Date: 20190812
  Transmission Date: 20200122
  Serious: No
  Sender: FDA-Public Use
  Company Number: None

PATIENT
  Age: 55 Year
  Sex: Female

DRUGS (5)
  1. HYDROMORPHON [Concomitant]
     Active Substance: HYDROMORPHONE
  2. OXYCODONE [Concomitant]
     Active Substance: OXYCODONE
  3. OCALIVA [Suspect]
     Active Substance: OBETICHOLIC ACID
     Indication: PRIMARY BILIARY CHOLANGITIS
     Route: 048
     Dates: start: 20170208
  4. FLUTICASONE. [Concomitant]
     Active Substance: FLUTICASONE
  5. ESTRADIOL. [Concomitant]
     Active Substance: ESTRADIOL

REACTIONS (1)
  - Rash macular [None]

NARRATIVE: CASE EVENT DATE: 201907
